FAERS Safety Report 8241396 (Version 3)
Quarter: 2013Q1

REPORT INFORMATION
  Report Type: Report from Study
  Country: JP (occurrence: JP)
  Receive Date: 20111111
  Receipt Date: 20130325
  Transmission Date: 20140127
  Serious: Yes (Hospitalization)
  Sender: FDA-Public Use
  Company Number: JP-GLAXOSMITHKLINE-B0714053A

PATIENT
  Age: 71 Year
  Sex: Female

DRUGS (6)
  1. REVOLADE [Suspect]
     Indication: IDIOPATHIC THROMBOCYTOPENIC PURPURA
     Dosage: 12.5MG PER DAY
     Route: 048
     Dates: start: 20110329, end: 20110509
  2. REVOLADE [Suspect]
     Indication: IDIOPATHIC THROMBOCYTOPENIC PURPURA
     Dosage: 25MG PER DAY
     Route: 048
     Dates: start: 20110510, end: 20110530
  3. PREDONINE [Concomitant]
     Indication: IDIOPATHIC THROMBOCYTOPENIC PURPURA
     Dosage: 5MG PER DAY
     Route: 048
     Dates: start: 20110412
  4. AMLODIN [Concomitant]
     Indication: HYPERTENSION
     Dosage: 5MG PER DAY
     Route: 048
     Dates: start: 20081004
  5. TAKEPRON [Concomitant]
     Indication: PROPHYLAXIS AGAINST GASTROINTESTINAL ULCER
     Dosage: 15MG TWICE PER DAY
     Route: 048
  6. MAGLAX [Concomitant]
     Indication: CONSTIPATION
     Dosage: 330MG THREE TIMES PER DAY
     Route: 048

REACTIONS (6)
  - Cerebral infarction [Recovered/Resolved]
  - Colitis ischaemic [Recovered/Resolved]
  - Colitis ischaemic [Recovered/Resolved]
  - Myalgia [Recovering/Resolving]
  - Glossodynia [Recovered/Resolved]
  - Pancreatitis [Recovered/Resolved]
